FAERS Safety Report 10161079 (Version 2)
Quarter: 2014Q2

REPORT INFORMATION
  Report Type: Spontaneous
  Country: US (occurrence: US)
  Receive Date: 20140508
  Receipt Date: 20140606
  Transmission Date: 20141212
  Serious: Yes (Life-Threatening, Hospitalization, Other)
  Sender: FDA-Public Use
  Company Number: US-PFIZER INC-2014123454

PATIENT
  Age: 66 Year
  Sex: Female

DRUGS (3)
  1. XELJANZ [Suspect]
     Indication: RHEUMATOID ARTHRITIS
     Dosage: 5 MG, 2X/DAY
     Route: 048
     Dates: start: 201401, end: 20140406
  2. PREDNISONE [Suspect]
     Dosage: 10 MG, DAILY
  3. METHOTREXATE [Suspect]

REACTIONS (5)
  - Large intestine perforation [Recovering/Resolving]
  - Peritonitis [Recovering/Resolving]
  - Sepsis [Recovering/Resolving]
  - Diverticulitis [Recovering/Resolving]
  - Abscess rupture [Recovering/Resolving]
